FAERS Safety Report 6736127-9 (Version None)
Quarter: 2010Q2

REPORT INFORMATION
  Report Type: 
  Country: None (occurrence: None)
  Receive Date: 20100521
  Receipt Date: 20100519
  Transmission Date: 20101027
  Serious: Yes (Other)
  Sender: FDA-Public Use
  Company Number: A0860373A

PATIENT
  Age: 64 Year
  Sex: Female

DRUGS (1)
  1. ALLI [Suspect]
     Indication: WEIGHT LOSS DIET
     Route: 048
     Dates: start: 20070101, end: 20100101

REACTIONS (4)
  - BIOPSY LIVER [None]
  - DRUG ADMINISTRATION ERROR [None]
  - HEPATIC ENZYME INCREASED [None]
  - LIVER INJURY [None]
